FAERS Safety Report 19951153 (Version 1)
Quarter: 2021Q4

REPORT INFORMATION
  Report Type: Spontaneous
  Country: GB (occurrence: GB)
  Receive Date: 20211014
  Receipt Date: 20211014
  Transmission Date: 20220304
  Serious: Yes (Other)
  Sender: FDA-Public Use
  Company Number: GB-MHRA-EYC 00261968

PATIENT
  Age: 66 Year
  Sex: Male
  Weight: 82.55 kg

DRUGS (2)
  1. NAPROXEN [Suspect]
     Active Substance: NAPROXEN
     Indication: Laryngitis
     Dosage: UNK (ONE TABLET 17/9 EVENING AND THEN 2 TABLETS AS PRESCRIBED EON THE 3 DAYS AFTER)
     Route: 048
     Dates: start: 20210917, end: 20210920
  2. IBUPROFEN [Concomitant]
     Active Substance: IBUPROFEN
     Indication: Bursitis
     Dosage: UNK (AS NECESSARY)
     Route: 065

REACTIONS (3)
  - Lip blister [Recovering/Resolving]
  - Rhinorrhoea [Recovering/Resolving]
  - Rectal haemorrhage [Recovering/Resolving]

NARRATIVE: CASE EVENT DATE: 20210919
